FAERS Safety Report 9787640 (Version 2)
Quarter: 2014Q1

REPORT INFORMATION
  Report Type: Spontaneous
  Country: US (occurrence: None)
  Receive Date: 20131226
  Receipt Date: 20140304
  Transmission Date: 20141002
  Serious: Yes (Hospitalization, Other)
  Sender: FDA-Public Use
  Company Number: 2013-US-004825

PATIENT
  Age: 44 Year
  Sex: Female

DRUGS (1)
  1. XYREM (SODIUM OXYBATE) ORAL SOLUTION, 500 MG/ML [Suspect]
     Indication: SLEEP DISORDER
     Route: 048
     Dates: start: 201009, end: 2012

REACTIONS (2)
  - Gastric bypass [None]
  - Off label use [None]
